FAERS Safety Report 9488388 (Version 2)
Quarter: 2014Q2

REPORT INFORMATION
  Report Type: Spontaneous
  Country: US (occurrence: US)
  Receive Date: 20130725
  Receipt Date: 20140626
  Transmission Date: 20141212
  Serious: Yes (Hospitalization)
  Sender: FDA-Public Use
  Company Number: US-GLAXOSMITHKLINE-A0985969A

PATIENT
  Sex: Male

DRUGS (1)
  1. AVANDIA [Suspect]
     Indication: DIABETES MELLITUS
     Dosage: 8MG PER DAY
     Route: 048
     Dates: start: 200508, end: 20070904

REACTIONS (10)
  - Pericardial effusion [Unknown]
  - Pulmonary oedema [Unknown]
  - Ischaemic cardiomyopathy [Unknown]
  - Congestive cardiomyopathy [Unknown]
  - Cardiac failure congestive [Unknown]
  - Cardiac disorder [Unknown]
  - Arteriosclerosis coronary artery [Unknown]
  - Mitral valve prolapse [Unknown]
  - Pleural effusion [Unknown]
  - Coronary artery disease [Unknown]
